FAERS Safety Report 5121546-7 (Version None)
Quarter: 2006Q4

REPORT INFORMATION
  Report Type: 
  Country: None (occurrence: None)
  Receive Date: 20061003
  Receipt Date: 20060920
  Transmission Date: 20070319
  Serious: Yes (Life-Threatening)
  Sender: FDA-Public Use
  Company Number: 2006113160

PATIENT
  Sex: Female

DRUGS (1)
  1. SUTENT [Suspect]
     Dosage: ORAL
     Route: 048
     Dates: start: 20060101

REACTIONS (3)
  - CARDIAC FAILURE [None]
  - MUSCLE DISORDER [None]
  - RENAL FAILURE ACUTE [None]
